FAERS Safety Report 9657836 (Version 2)
Quarter: 2014Q3

REPORT INFORMATION
  Report Type: Spontaneous
  Country: US (occurrence: US)
  Receive Date: 20131030
  Receipt Date: 20140820
  Transmission Date: 20150326
  Serious: Yes (Other)
  Sender: FDA-Public Use
  Company Number: US-009507513-1310USA012778

PATIENT
  Sex: Female
  Weight: 116.55 kg

DRUGS (1)
  1. NUVARING [Suspect]
     Active Substance: ETHINYL ESTRADIOL\ETONOGESTREL
     Indication: CONTRACEPTION
     Dosage: 0.015-0.120MG
     Route: 067
     Dates: start: 20110315, end: 20110712

REACTIONS (3)
  - Pulmonary embolism [Unknown]
  - Dysmenorrhoea [Unknown]
  - Dysfunctional uterine bleeding [Unknown]

NARRATIVE: CASE EVENT DATE: 20110608
